FAERS Safety Report 8229687-2 (Version None)
Quarter: 2012Q1

REPORT INFORMATION
  Report Type: 
  Country: None (occurrence: None)
  Receive Date: 20120322
  Receipt Date: 20120320
  Transmission Date: 20120608
  Serious: Yes (Death, Hospitalization)
  Sender: FDA-Public Use
  Company Number: PHHY2012IN024235

PATIENT
  Age: 76 Year
  Sex: Female

DRUGS (4)
  1. SELOMAX [Concomitant]
     Indication: CARDIAC DISORDER
  2. ATOCAR [Concomitant]
     Indication: CARDIAC DISORDER
  3. IMDUR [Concomitant]
     Indication: CARDIAC DISORDER
  4. TASIGNA [Suspect]
     Indication: CHRONIC MYELOID LEUKAEMIA
     Dosage: 400 MG, BID
     Route: 048
     Dates: start: 20111109, end: 20111207

REACTIONS (3)
  - DYSPNOEA [None]
  - MULTI-ORGAN FAILURE [None]
  - CARDIAC ARREST [None]
